FAERS Safety Report 9538152 (Version 1)
Quarter: 2013Q3

REPORT INFORMATION
  Report Type: Spontaneous
  Country: US (occurrence: US)
  Receive Date: 20130920
  Receipt Date: 20130920
  Transmission Date: 20140515
  Serious: No
  Sender: FDA-Public Use
  Company Number: US-BIOGENIDEC-2013BI088203

PATIENT
  Sex: Female

DRUGS (2)
  1. TYSABRI [Suspect]
     Indication: MULTIPLE SCLEROSIS
     Route: 042
     Dates: start: 20121213, end: 20130813
  2. COPAXONE [Concomitant]
     Indication: MULTIPLE SCLEROSIS

REACTIONS (4)
  - Memory impairment [Not Recovered/Not Resolved]
  - Nuclear magnetic resonance imaging abnormal [Unknown]
  - Malaise [Unknown]
  - Asthenia [Recovered/Resolved]
